FAERS Safety Report 17687934 (Version 2)
Quarter: 2020Q2

REPORT INFORMATION
  Report Type: Report from Study
  Country: AR (occurrence: AR)
  Receive Date: 20200421
  Receipt Date: 20200629
  Transmission Date: 20200714
  Serious: Yes (Hospitalization, Other)
  Sender: FDA-Public Use
  Company Number: PHHY2019AR221579

PATIENT
  Sex: Female

DRUGS (3)
  1. AMLODIPINE [Concomitant]
     Active Substance: AMLODIPINE BESYLATE
     Indication: PRODUCT USED FOR UNKNOWN INDICATION
     Dosage: 10 MG, QD
     Route: 065
  2. AFINITOR [Suspect]
     Active Substance: EVEROLIMUS
     Indication: BREAST CANCER
     Dosage: 5 MG, QD
     Route: 065
     Dates: start: 20190201, end: 20190621
  3. AFINITOR [Suspect]
     Active Substance: EVEROLIMUS
     Indication: RENAL CANCER
     Dosage: 10 MG, QD
     Route: 065
     Dates: start: 20190201, end: 20200220

REACTIONS (14)
  - Diarrhoea [Recovering/Resolving]
  - Malaise [Unknown]
  - Nasopharyngitis [Recovering/Resolving]
  - Pulmonary embolism [Recovering/Resolving]
  - Vomiting [Unknown]
  - Pruritus [Recovering/Resolving]
  - Inappropriate schedule of product administration [Unknown]
  - Pneumonia [Recovering/Resolving]
  - Hypersensitivity [Unknown]
  - Back pain [Unknown]
  - Abdominal pain upper [Recovering/Resolving]
  - Toxicity to various agents [Recovering/Resolving]
  - Peripheral swelling [Recovering/Resolving]
  - Urticaria [Unknown]
